FAERS Safety Report 9384919 (Version 2)
Quarter: 2013Q3

REPORT INFORMATION
  Report Type: Spontaneous
  Country: US (occurrence: US)
  Receive Date: 20130705
  Receipt Date: 20130811
  Transmission Date: 20140515
  Serious: No
  Sender: FDA-Public Use
  Company Number: US-009507513-1307USA000344

PATIENT
  Age: 15 Year
  Sex: Male
  Weight: 71.2 kg

DRUGS (1)
  1. NASONEX [Suspect]
     Indication: RHINITIS ALLERGIC
     Dosage: 2 SPRAYS DAILY, PRN
     Route: 045

REACTIONS (4)
  - Epistaxis [Recovered/Resolved]
  - Nasal congestion [Not Recovered/Not Resolved]
  - Headache [Unknown]
  - Drug ineffective [Unknown]
